FAERS Safety Report 9528090 (Version 1)
Quarter: 2013Q3

REPORT INFORMATION
  Report Type: Spontaneous
  Country: JP (occurrence: None)
  Receive Date: 20130913
  Receipt Date: 20130913
  Transmission Date: 20140515
  Serious: Yes (Hospitalization, Other)
  Sender: FDA-Public Use
  Company Number: ABR_01073_2013

PATIENT
  Age: 72 Year
  Sex: Female
  Weight: 50 kg

DRUGS (2)
  1. GLIADEL [Suspect]
     Indication: MALIGNANT GLIOMA
     Dosage: (61.6 MG 1X INTRACEREBRAL)
     Dates: start: 20130412, end: 20130412
  2. TEMODAL [Concomitant]

REACTIONS (5)
  - Pyrexia [None]
  - Brain oedema [None]
  - Condition aggravated [None]
  - Convulsion [None]
  - Procedural site reaction [None]
